FAERS Safety Report 23433273 (Version 2)
Quarter: 2025Q1

REPORT INFORMATION
  Report Type: Spontaneous
  Country: US (occurrence: US)
  Receive Date: 20240123
  Receipt Date: 20250327
  Transmission Date: 20250409
  Serious: Yes (Other)
  Sender: TEVA
  Company Number: US-TEVA-VS-3147556

PATIENT
  Age: 65 Year
  Sex: Female

DRUGS (2)
  1. ARMODAFINIL [Suspect]
     Active Substance: ARMODAFINIL
     Indication: Bipolar disorder
     Dosage: HIGH-DOSE; GRADUALLY TITRATED
     Route: 065
  2. KETAMINE [Suspect]
     Active Substance: KETAMINE
     Indication: Bipolar disorder
     Route: 042

REACTIONS (3)
  - Treatment failure [Unknown]
  - Off label use [Unknown]
  - Myopathy [Unknown]
